FAERS Safety Report 8042076-9 (Version None)
Quarter: 2012Q1

REPORT INFORMATION
  Report Type: 
  Country: None (occurrence: None)
  Receive Date: 20120112
  Receipt Date: 20120105
  Transmission Date: 20120608
  Serious: Yes (Other)
  Sender: FDA-Public Use
  Company Number: US-BAYER-2011-023734

PATIENT
  Age: 48 Year
  Sex: Female
  Weight: 96.145 kg

DRUGS (5)
  1. NORVASC [Concomitant]
     Dosage: 5 MG, UNK
     Route: 048
  2. NAPROSYN [Concomitant]
     Dosage: 250 MG, PRN
     Route: 048
  3. PAXIL [Concomitant]
     Dosage: 10 MG, UNK
     Route: 048
  4. MIRENA [Suspect]
     Indication: PRODUCT USED FOR UNKNOWN INDICATION
     Dosage: 20 ?G, CONT
     Route: 015
     Dates: start: 20070801, end: 20110103
  5. PRILOSEC [Concomitant]
     Route: 048

REACTIONS (6)
  - COMPLICATION OF DEVICE REMOVAL [None]
  - DEVICE BREAKAGE [None]
  - PROCEDURAL PAIN [None]
  - DEVICE DISLOCATION [None]
  - DISCOMFORT [None]
  - AMENORRHOEA [None]
